FAERS Safety Report 9050284 (Version 1)
Quarter: 2013Q1

REPORT INFORMATION
  Report Type: Spontaneous
  Country: DE (occurrence: DE)
  Receive Date: 20130205
  Receipt Date: 20130205
  Transmission Date: 20140127
  Serious: Yes (Death, Hospitalization, Other)
  Sender: FDA-Public Use
  Company Number: DE-ROCHE-1152942

PATIENT
  Age: 64 Year
  Sex: Female
  Weight: 62 kg

DRUGS (4)
  1. ROACTEMRA [Suspect]
     Indication: RHEUMATOID ARTHRITIS
     Route: 065
     Dates: start: 20120612
  2. ROACTEMRA [Suspect]
     Route: 065
     Dates: start: 20120710
  3. ROACTEMRA [Suspect]
     Route: 065
     Dates: start: 20120808
  4. ROACTEMRA [Suspect]
     Route: 065
     Dates: start: 20120905

REACTIONS (6)
  - Alanine aminotransferase increased [Unknown]
  - Aspartate aminotransferase increased [Unknown]
  - Gamma-glutamyltransferase increased [Fatal]
  - Neuroendocrine carcinoma metastatic [Fatal]
  - Blood glucose abnormal [Unknown]
  - Transaminases increased [Fatal]
